FAERS Safety Report 15036725 (Version 1)
Quarter: 2018Q2

REPORT INFORMATION
  Report Type: Spontaneous
  Country: US (occurrence: US)
  Receive Date: 20180530
  Receipt Date: 20180530
  Transmission Date: 20180711
  Serious: Yes (Other)
  Sender: FDA-Public Use
  Company Number: None

PATIENT
  Age: 59 Year
  Sex: Male
  Weight: 79.38 kg

DRUGS (2)
  1. WARFARIN 5 MG [Suspect]
     Active Substance: WARFARIN
     Indication: PULMONARY EMBOLISM
     Route: 048
     Dates: start: 20180404
  2. WARFARIN 5 MG [Suspect]
     Active Substance: WARFARIN
     Indication: DEEP VEIN THROMBOSIS
     Route: 048
     Dates: start: 20180404

REACTIONS (3)
  - Nausea [None]
  - Vomiting [None]
  - Drug intolerance [None]

NARRATIVE: CASE EVENT DATE: 20180404
